FAERS Safety Report 10079076 (Version 2)
Quarter: 2014Q2

REPORT INFORMATION
  Report Type: Spontaneous
  Country: IT (occurrence: IT)
  Receive Date: 20140415
  Receipt Date: 20140415
  Transmission Date: 20141212
  Serious: Yes (Hospitalization)
  Sender: FDA-Public Use
  Company Number: IT-ACTAVIS-2014-03465

PATIENT
  Age: 1 Year
  Sex: Male
  Weight: 12 kg

DRUGS (3)
  1. PARACETAMOL  (UNKNOWN) [Suspect]
     Indication: PYREXIA
     Dosage: 250 MG, UNK
     Route: 054
     Dates: start: 20130202, end: 20140203
  2. PARACETAMOL  (UNKNOWN) [Suspect]
     Dosage: 250 MG, TID
     Route: 065
     Dates: start: 20140314
  3. IBUPROFEN (UNKNOWN) [Suspect]
     Indication: PYREXIA
     Dosage: 4 MG, PRN
     Route: 048
     Dates: start: 20140202, end: 20140203

REACTIONS (1)
  - Rhabdomyolysis [Recovered/Resolved]
